FAERS Safety Report 12989669 (Version 2)
Quarter: 2017Q4

REPORT INFORMATION
  Report Type: Spontaneous
  Country: FR (occurrence: FR)
  Receive Date: 20161201
  Receipt Date: 20171106
  Transmission Date: 20180320
  Serious: Yes (Death)
  Sender: FDA-Public Use
  Company Number: FR-ROCHE-1860894

PATIENT
  Age: 13 Year
  Sex: Female

DRUGS (2)
  1. NUTROPIN [Suspect]
     Active Substance: SOMATROPIN
     Indication: GROWTH FAILURE
     Dosage: MAXIMUM 0.35 TO 2
     Route: 065
  2. ETOPOSIDE. [Suspect]
     Active Substance: ETOPOSIDE
     Indication: NEUROBLASTOMA
     Dosage: SINGLE CYCLE
     Route: 065

REACTIONS (2)
  - Off label use [Unknown]
  - Ewing^s sarcoma metastatic [Fatal]
